FAERS Safety Report 8812527 (Version 3)
Quarter: 2018Q2

REPORT INFORMATION
  Report Type: Spontaneous
  Country: US (occurrence: US)
  Receive Date: 20120927
  Receipt Date: 20180628
  Transmission Date: 20180711
  Serious: No
  Sender: FDA-Public Use
  Company Number: US-JNJFOC-20120904601

PATIENT
  Age: 43 Year
  Sex: Female
  Weight: 51.71 kg

DRUGS (7)
  1. RISPERIDONE. [Suspect]
     Active Substance: RISPERIDONE
     Indication: SCHIZOAFFECTIVE DISORDER BIPOLAR TYPE
     Dosage: 3 ML, 3 ML AND 3 ML
     Route: 048
     Dates: start: 19970724
  2. RISPERIDONE. [Suspect]
     Active Substance: RISPERIDONE
     Indication: SCHIZOAFFECTIVE DISORDER BIPOLAR TYPE
     Dosage: 3 ML, 3 ML, 2 ML
     Route: 048
     Dates: start: 2012
  3. RISPERIDONE. [Suspect]
     Active Substance: RISPERIDONE
     Indication: DEAF MUTISM
     Dosage: 3 ML, 3 ML, 2 ML
     Route: 048
     Dates: start: 2012
  4. INVEGA SUSTENNA [Suspect]
     Active Substance: PALIPERIDONE PALMITATE
     Indication: SCHIZOAFFECTIVE DISORDER BIPOLAR TYPE
     Dosage: 125
     Route: 030
     Dates: start: 2012
  5. RISPERIDONE. [Suspect]
     Active Substance: RISPERIDONE
     Indication: DEAF MUTISM
     Dosage: 3 ML, 3 ML AND 3 ML
     Route: 048
     Dates: start: 19970724
  6. INVEGA SUSTENNA [Suspect]
     Active Substance: PALIPERIDONE PALMITATE
     Indication: DEAF MUTISM
     Dosage: 125
     Route: 030
     Dates: start: 2012
  7. DEPAKOTE [Suspect]
     Active Substance: DIVALPROEX SODIUM
     Indication: PRODUCT USED FOR UNKNOWN INDICATION
     Route: 048
     Dates: end: 2009

REACTIONS (11)
  - Disturbance in social behaviour [Not Recovered/Not Resolved]
  - Unevaluable event [Unknown]
  - Infertility female [Unknown]
  - Memory impairment [Unknown]
  - Product quality issue [Unknown]
  - Hostility [Not Recovered/Not Resolved]
  - Incorrect dose administered [Unknown]
  - Dizziness [Not Recovered/Not Resolved]
  - Cough [Not Recovered/Not Resolved]
  - Drug prescribing error [Unknown]
  - Off label use [Unknown]

NARRATIVE: CASE EVENT DATE: 2012
